FAERS Safety Report 9146466 (Version 1)
Quarter: 2013Q1

REPORT INFORMATION
  Report Type: Spontaneous
  Country: US (occurrence: US)
  Receive Date: 20130307
  Receipt Date: 20130307
  Transmission Date: 20140127
  Serious: No
  Sender: FDA-Public Use
  Company Number: US-GLAXOSMITHKLINE-A0868946A

PATIENT
  Age: 88 Year
  Sex: Female

DRUGS (19)
  1. REQUIP [Suspect]
     Indication: RESTLESS LEGS SYNDROME
     Dosage: 2MG PER DAY
     Route: 048
     Dates: start: 2004
  2. ROPINIROLE [Suspect]
     Indication: RESTLESS LEGS SYNDROME
     Dosage: 1MG PER DAY
     Route: 048
     Dates: start: 2005
  3. IRON PILLS [Concomitant]
  4. LOPRESSOR [Concomitant]
  5. HYDRALAZINE [Concomitant]
  6. FUROSEMIDE [Concomitant]
  7. OMEPRAZOLE [Concomitant]
  8. ADVAIR [Concomitant]
  9. VESICARE [Concomitant]
  10. HYTRIN [Concomitant]
  11. CALTRATE [Concomitant]
  12. PROCRIT [Concomitant]
  13. NEPHRO-VITE [Concomitant]
  14. VITAMIN C [Concomitant]
  15. NORVASC [Concomitant]
  16. LOMOTIL [Concomitant]
  17. VICODIN [Concomitant]
  18. BLOOD THINNER [Concomitant]
  19. BLOOD PRESSURE MEDICATION [Concomitant]

REACTIONS (3)
  - Restless legs syndrome [Unknown]
  - Pain in extremity [Unknown]
  - Drug ineffective [Unknown]
